FAERS Safety Report 16640883 (Version 4)
Quarter: 2024Q4

REPORT INFORMATION
  Report Type: Report from Study
  Country: DE (occurrence: DE)
  Receive Date: 20190729
  Receipt Date: 20241015
  Transmission Date: 20250115
  Serious: Yes (Other)
  Sender: AMGEN
  Company Number: DE-ROCHE-2352320

PATIENT
  Age: 52 Year
  Sex: Female
  Weight: 89 kg

DRUGS (8)
  1. TRASTUZUMAB [Suspect]
     Active Substance: TRASTUZUMAB
     Indication: Breast cancer
     Dosage: 712 MILLIGRAM
     Route: 042
     Dates: start: 20190321, end: 20190321
  2. TRASTUZUMAB [Suspect]
     Active Substance: TRASTUZUMAB
     Dosage: 712 MILLIGRAM
     Route: 042
  3. TRASTUZUMAB [Suspect]
     Active Substance: TRASTUZUMAB
     Dosage: 534 MILLIGRAM
     Route: 042
     Dates: start: 20190411
  4. PERTUZUMAB [Suspect]
     Active Substance: PERTUZUMAB
     Indication: Breast cancer
     Dosage: 840 MILLIGRAM
     Route: 042
     Dates: start: 20190321, end: 20190321
  5. PERTUZUMAB [Suspect]
     Active Substance: PERTUZUMAB
     Dosage: 420 MILLIGRAM
     Route: 042
     Dates: start: 20190411, end: 20190523
  6. PERTUZUMAB [Suspect]
     Active Substance: PERTUZUMAB
     Dosage: 420 MILLIGRAM
     Route: 042
  7. DOCETAXEL [Suspect]
     Active Substance: DOCETAXEL
     Indication: Breast cancer
     Dosage: 154 MILLIGRAM
     Route: 042
     Dates: start: 20190321
  8. DOCETAXEL [Suspect]
     Active Substance: DOCETAXEL
     Dosage: 154 MILLIGRAM
     Route: 042
     Dates: start: 20190321

REACTIONS (2)
  - Polyneuropathy [Unknown]
  - Cardiovascular disorder [Unknown]

NARRATIVE: CASE EVENT DATE: 20190322
